FAERS Safety Report 6939256-X (Version None)
Quarter: 2010Q3

REPORT INFORMATION
  Report Type: 
  Country: None (occurrence: None)
  Receive Date: 20100824
  Receipt Date: 20100819
  Transmission Date: 20110219
  Serious: Yes (Death)
  Sender: FDA-Public Use
  Company Number: US-CELGENEUS-163-21880-10081870

PATIENT
  Sex: Male

DRUGS (2)
  1. REVLIMID [Suspect]
     Route: 048
     Dates: start: 20100501
  2. REVLIMID [Suspect]
     Route: 048
     Dates: start: 20090813

REACTIONS (4)
  - DEATH [None]
  - NEUROPATHY PERIPHERAL [None]
  - PLATELET COUNT DECREASED [None]
  - RASH [None]
